FAERS Safety Report 18068635 (Version 1)
Quarter: 2020Q3

REPORT INFORMATION
  Report Type: Spontaneous
  Country: CA (occurrence: CA)
  Receive Date: 20200724
  Receipt Date: 20200724
  Transmission Date: 20201103
  Serious: Yes (Death, Life-Threatening, Hospitalization, Other)
  Sender: FDA-Public Use
  Company Number: CA-BAUSCH-BL-2020-020859

PATIENT
  Age: 41 Year
  Sex: Male
  Weight: 83 kg

DRUGS (8)
  1. RIFAMPICIN [Suspect]
     Active Substance: RIFAMPIN
     Indication: PRODUCT USED FOR UNKNOWN INDICATION
     Route: 065
  2. ISONIAZID. [Suspect]
     Active Substance: ISONIAZID
     Indication: PRODUCT USED FOR UNKNOWN INDICATION
     Route: 065
  3. ETHAMBUTOL [Suspect]
     Active Substance: ETHAMBUTOL HYDROCHLORIDE
     Indication: PRODUCT USED FOR UNKNOWN INDICATION
     Route: 065
  4. ACYCLOVIR. [Suspect]
     Active Substance: ACYCLOVIR
     Indication: ANTIVIRAL TREATMENT
     Route: 065
  5. ETANERCEPT [Suspect]
     Active Substance: ETANERCEPT
     Indication: PSORIASIS
     Route: 058
  6. METHYLPREDNISOLONE. [Suspect]
     Active Substance: METHYLPREDNISOLONE
     Indication: PRODUCT USED FOR UNKNOWN INDICATION
     Route: 065
  7. PYRAZINAMIDE. [Suspect]
     Active Substance: PYRAZINAMIDE
     Indication: PRODUCT USED FOR UNKNOWN INDICATION
     Route: 065
  8. AMPHOTERICIN B. [Suspect]
     Active Substance: AMPHOTERICIN B
     Indication: ANTIFUNGAL TREATMENT
     Route: 065

REACTIONS (16)
  - Pneumonia [Fatal]
  - Diaphragmatic injury [Fatal]
  - Encephalopathy [Fatal]
  - Lymphadenopathy [Fatal]
  - Ascites [Fatal]
  - Granulomatous liver disease [Fatal]
  - Splenic infarction [Fatal]
  - Acute kidney injury [Fatal]
  - Pulmonary granuloma [Fatal]
  - Sepsis [Fatal]
  - Granuloma [Fatal]
  - Jaundice [Fatal]
  - Pleural effusion [Fatal]
  - Pulmonary oedema [Fatal]
  - Renal atrophy [Fatal]
  - Generalised oedema [Fatal]
